FAERS Safety Report 25261311 (Version 1)
Quarter: 2025Q2

REPORT INFORMATION
  Report Type: Report from Study
  Country: US (occurrence: US)
  Receive Date: 20250501
  Receipt Date: 20250501
  Transmission Date: 20250716
  Serious: Yes (Hospitalization, Other)
  Sender: ABBVIE
  Company Number: US-ABBVIE-6256988

PATIENT
  Age: 57 Year
  Sex: Female

DRUGS (3)
  1. RINVOQ [Suspect]
     Active Substance: UPADACITINIB
     Indication: Rheumatoid arthritis
     Route: 048
     Dates: start: 2022
  2. RINVOQ [Suspect]
     Active Substance: UPADACITINIB
     Indication: Rheumatoid arthritis
     Route: 048
     Dates: end: 2024
  3. RINVOQ [Suspect]
     Active Substance: UPADACITINIB
     Indication: Rheumatoid arthritis
     Route: 048

REACTIONS (12)
  - Hospitalisation [Unknown]
  - COVID-19 [Unknown]
  - Colitis [Unknown]
  - Enteritis [Unknown]
  - Pyrexia [Unknown]
  - Herpes zoster [Unknown]
  - Oral surgery [Unknown]
  - Tooth disorder [Unknown]
  - Oral surgery [Unknown]
  - Rheumatoid arthritis [Unknown]
  - Nasal ulcer [Unknown]
  - Respiratory tract infection [Unknown]

NARRATIVE: CASE EVENT DATE: 20220101
